FAERS Safety Report 9026875 (Version 1)
Quarter: 2013Q1

REPORT INFORMATION
  Report Type: Report from Study
  Country: US (occurrence: US)
  Receive Date: 20130123
  Receipt Date: 20130123
  Transmission Date: 20140127
  Serious: No
  Sender: FDA-Public Use
  Company Number: US-VERTEX PHARMACEUTICALS INC.-2013-000955

PATIENT
  Sex: Male
  Weight: 77 kg

DRUGS (13)
  1. VX-950 (TELAPREVIR) [Suspect]
     Indication: HEPATITIS C
     Dosage: 750 MG, TID
     Route: 048
     Dates: start: 20120927
  2. PEGASYS [Suspect]
     Indication: HEPATITIS C
     Dosage: 180 ?G, QW
     Route: 058
     Dates: start: 20120927
  3. RIBASPHERE [Suspect]
     Indication: HEPATITIS C
     Dosage: 600 MG, BID
     Route: 048
     Dates: start: 20120927
  4. NOVOLOG [Concomitant]
     Dosage: 1 UT, PRN
     Route: 058
  5. MULTIVITAMIN [Concomitant]
     Dosage: 1 DF, QD
     Route: 048
  6. EVENING PRIMROSE OIL [Concomitant]
     Dosage: 500 MG, QD
     Route: 048
  7. ASPIRIN (E.C.) [Concomitant]
     Dosage: 81 MG, QD
     Route: 048
  8. VITAMIN D [Concomitant]
     Dosage: 1 DF, QD
     Route: 048
  9. FISH OIL [Concomitant]
     Dosage: 1 DF, QD
     Route: 048
  10. MILK THISTLE [Concomitant]
     Dosage: 1 DF, QD
     Route: 048
  11. FLAXSEED OIL [Concomitant]
     Dosage: 1 DF, QD
     Route: 048
  12. VASOTEC [Concomitant]
     Dosage: 1 DF, QD
     Route: 048
  13. N-ACETYL-L-CYSTEINE [Concomitant]

REACTIONS (1)
  - Skin discolouration [Not Recovered/Not Resolved]
